FAERS Safety Report 24981998 (Version 1)
Quarter: 2025Q1

REPORT INFORMATION
  Report Type: Other
  Country: US (occurrence: US)
  Receive Date: 20250218
  Receipt Date: 20250218
  Transmission Date: 20250409
  Serious: Yes (Hospitalization, Other)
  Sender: COREPHARMA LLC
  Company Number: US-CorePharma LLC-2171292

PATIENT
  Age: 46 Year
  Sex: Female

DRUGS (12)
  1. LISINOPRIL [Suspect]
     Active Substance: LISINOPRIL
     Indication: Hypertension
  2. AMLODIPINE [Suspect]
     Active Substance: AMLODIPINE BESYLATE
  3. DIAZEPAM [Concomitant]
     Active Substance: DIAZEPAM
  4. MIDAZOLAM [Concomitant]
     Active Substance: MIDAZOLAM
  5. EPINEPHRINE [Concomitant]
     Active Substance: EPINEPHRINE
  6. PHENYLEPHRINE [Concomitant]
     Active Substance: PHENYLEPHRINE
  7. VASOPRESSIN [Concomitant]
     Active Substance: VASOPRESSIN
  8. CALCIUM GLUCONATE [Concomitant]
     Active Substance: CALCIUM GLUCONATE
  9. NALOXONE [Concomitant]
     Active Substance: NALOXONE
  10. METHYLENE BLUE [Concomitant]
     Active Substance: METHYLENE BLUE
  11. BUSPIRONE [Suspect]
     Active Substance: BUSPIRONE HYDROCHLORIDE
  12. SERTRALINE [Suspect]
     Active Substance: SERTRALINE HYDROCHLORIDE

REACTIONS (2)
  - Distributive shock [Unknown]
  - Intentional overdose [Unknown]
